FAERS Safety Report 4635081-3 (Version None)
Quarter: 2005Q2

REPORT INFORMATION
  Report Type: 
  Country: None (occurrence: None)
  Receive Date: 20050414
  Receipt Date: 20050405
  Transmission Date: 20051028
  Serious: Yes (Other)
  Sender: FDA-Public Use
  Company Number: US-ROCHE-401146

PATIENT
  Sex: Male

DRUGS (4)
  1. FUZEON [Suspect]
     Indication: HIV INFECTION
     Dosage: ROUTE REPORTED AS INJECTABLE
     Route: 050
     Dates: start: 20040409
  2. EMTRIVA [Concomitant]
     Indication: HIV INFECTION
     Dates: start: 20040409
  3. VIREAD [Concomitant]
     Indication: HIV INFECTION
     Dates: start: 20040409
  4. KALETRA [Concomitant]
     Indication: HIV INFECTION
     Dates: start: 20040409

REACTIONS (3)
  - CARDIAC MURMUR [None]
  - DEEP VEIN THROMBOSIS [None]
  - MITRAL VALVE DISEASE [None]
